FAERS Safety Report 5644483-8 (Version None)
Quarter: 2008Q1

REPORT INFORMATION
  Report Type: 
  Country: None (occurrence: None)
  Receive Date: 20080229
  Receipt Date: 20070118
  Transmission Date: 20080703
  Serious: No
  Sender: FDA-Public Use
  Company Number: A0636138A

PATIENT
  Sex: Female

DRUGS (2)
  1. VALTREX [Suspect]
     Indication: HERPES ZOSTER
     Dosage: 1MG PER DAY
     Route: 048
     Dates: start: 20040101
  2. LIPITOR [Concomitant]

REACTIONS (2)
  - ILL-DEFINED DISORDER [None]
  - PRURITUS [None]
